FAERS Safety Report 5934576-X (Version None)
Quarter: 2008Q4

REPORT INFORMATION
  Report Type: 
  Country: None (occurrence: None)
  Receive Date: 20081029
  Receipt Date: 20081017
  Transmission Date: 20090506
  Serious: Yes (Hospitalization, Other)
  Sender: FDA-Public Use
  Company Number: US-PFIZER INC-2008084211

PATIENT
  Sex: Male

DRUGS (1)
  1. TIKOSYN [Suspect]
     Route: 048

REACTIONS (2)
  - DYSPHAGIA [None]
  - GASTROINTESTINAL DISORDER [None]
